FAERS Safety Report 16266986 (Version 1)
Quarter: 2019Q2

REPORT INFORMATION
  Report Type: Spontaneous
  Country: US (occurrence: US)
  Receive Date: 20190502
  Receipt Date: 20190502
  Transmission Date: 20190711
  Serious: No
  Sender: FDA-Public Use
  Company Number: US-TEVA-2019-US-1042407

PATIENT
  Sex: Female

DRUGS (3)
  1. NEFAZODONE HYDROCHLORIDE TABLETS [Suspect]
     Active Substance: NEFAZODONE HYDROCHLORIDE
     Indication: ANXIETY
     Route: 065
     Dates: start: 1999, end: 20190420
  2. NEFAZODONE HYDROCHLORIDE TABLETS [Suspect]
     Active Substance: NEFAZODONE HYDROCHLORIDE
     Indication: ANGER
  3. NEFAZODONE HYDROCHLORIDE TABLETS [Suspect]
     Active Substance: NEFAZODONE HYDROCHLORIDE
     Indication: DEPRESSION

REACTIONS (6)
  - Dizziness [Unknown]
  - Palpitations [Unknown]
  - Headache [Unknown]
  - Nausea [Unknown]
  - Wrong technique in product usage process [Unknown]
  - Feeling abnormal [Unknown]
